FAERS Safety Report 9972745 (Version 1)
Quarter: 2014Q1

REPORT INFORMATION
  Report Type: Spontaneous
  Country: US (occurrence: None)
  Receive Date: 20140127
  Receipt Date: 20140127
  Transmission Date: 20141002
  Serious: Yes (Other)
  Sender: FDA-Public Use
  Company Number: 1210854

PATIENT
  Age: 44 Year
  Sex: Male

DRUGS (10)
  1. RITUXAN [Suspect]
     Indication: RHEUMATOID ARTHRITIS
     Route: 042
     Dates: start: 20130322
  2. ZYRTEC (CETIRIZINE HYDROCHLORIDE) [Concomitant]
  3. PREDNISONE (PREDNISONE) [Concomitant]
  4. ALPRAZOLAM (ALPRAZOLAM) [Concomitant]
  5. FOLIC ACID (FOLIC ACID) [Concomitant]
  6. VENTOLIN (SALBUTAMOL/SALBUTAMOL SULFATE) [Concomitant]
  7. LYRICA (PREGABALIN) [Concomitant]
  8. EFFEXOR (VENLAFAXINE HYDROCHLORIDE) [Concomitant]
  9. METHOTREXATE (METHOTREXATE) [Concomitant]
  10. DICLOFENAC (DICLOFENAC) [Concomitant]

REACTIONS (4)
  - Loss of consciousness [None]
  - Rash [None]
  - Pruritus [None]
  - Head injury [None]
